FAERS Safety Report 20299314 (Version 1)
Quarter: 2022Q1

REPORT INFORMATION
  Report Type: Spontaneous
  Country: US (occurrence: None)
  Receive Date: 20220105
  Receipt Date: 20220105
  Transmission Date: 20220423
  Serious: No
  Sender: FDA-Public Use
  Company Number: 2021A907353

PATIENT
  Age: 78 Year
  Sex: Female

DRUGS (1)
  1. BUDESONIDE\FORMOTEROL\GLYCOPYRRONIUM [Suspect]
     Active Substance: BUDESONIDE\FORMOTEROL\GLYCOPYRRONIUM
     Indication: Chronic obstructive pulmonary disease
     Dosage: UNKNOWN UNKNOWN
     Route: 055

REACTIONS (5)
  - Headache [Unknown]
  - Macular degeneration [Unknown]
  - Drug dose omission by device [Not Recovered/Not Resolved]
  - Wrong technique in device usage process [Unknown]
  - Device delivery system issue [Unknown]

NARRATIVE: CASE EVENT DATE: 20210101
